FAERS Safety Report 4568661-4 (Version None)
Quarter: 2005Q1

REPORT INFORMATION
  Report Type: 
  Country: None (occurrence: None)
  Receive Date: 20050202
  Receipt Date: 20050112
  Transmission Date: 20050727
  Serious: Yes (Hospitalization)
  Sender: FDA-Public Use
  Company Number: JP-MERCK-0501USA02152

PATIENT
  Age: 10 Year
  Sex: Female

DRUGS (13)
  1. AMBROXOL HYDROCHLORIDE [Concomitant]
     Route: 048
     Dates: start: 20041222, end: 20041225
  2. HOKUNALIN [Concomitant]
     Route: 065
     Dates: start: 20041222, end: 20041225
  3. DIAZEPAM [Concomitant]
     Indication: HYPERTONIA
     Route: 054
     Dates: start: 20041222, end: 20041222
  4. PEPCID [Suspect]
     Indication: UPPER GASTROINTESTINAL HAEMORRHAGE
     Route: 042
     Dates: start: 20041222, end: 20041223
  5. PEPCID [Suspect]
     Route: 042
     Dates: start: 20041224, end: 20041224
  6. PEPCID [Suspect]
     Route: 048
     Dates: start: 20041225, end: 20041226
  7. PEPCID [Suspect]
     Route: 048
     Dates: start: 20041227, end: 20041228
  8. ROCEPHIN [Suspect]
     Indication: HYPERPYREXIA
     Route: 042
     Dates: start: 20041222, end: 20041223
  9. ROCEPHIN [Suspect]
     Route: 042
     Dates: start: 20041224, end: 20041225
  10. ROCEPHIN [Suspect]
     Indication: WHITE BLOOD CELL COUNT INCREASED
     Route: 042
     Dates: start: 20041222, end: 20041223
  11. ROCEPHIN [Suspect]
     Route: 042
     Dates: start: 20041224, end: 20041225
  12. CLARITHROMYCIN [Concomitant]
     Route: 048
     Dates: start: 20041222, end: 20041225
  13. MUCODYNE [Concomitant]
     Route: 048
     Dates: start: 20041222, end: 20041225

REACTIONS (1)
  - RHABDOMYOLYSIS [None]
